FAERS Safety Report 14708378 (Version 1)
Quarter: 2018Q2

REPORT INFORMATION
  Report Type: Spontaneous
  Country: DK (occurrence: DK)
  Receive Date: 20180403
  Receipt Date: 20180403
  Transmission Date: 20180711
  Serious: Yes (Hospitalization)
  Sender: FDA-Public Use
  Company Number: DK-BIOGEN-2018BI00547617

PATIENT
  Age: 50 Year
  Sex: Female

DRUGS (6)
  1. BETMIGA [Concomitant]
     Active Substance: MIRABEGRON
     Indication: HYPERTONIC BLADDER
     Route: 048
     Dates: start: 20151111
  2. TECFIDERA [Suspect]
     Active Substance: DIMETHYL FUMARATE
     Indication: MULTIPLE SCLEROSIS
     Route: 048
     Dates: start: 201709
  3. CIPRALEX [Concomitant]
     Active Substance: ESCITALOPRAM OXALATE
     Indication: DEPRESSION
     Route: 048
     Dates: start: 20150311
  4. REGENON [Concomitant]
     Active Substance: DIETHYLPROPION HYDROCHLORIDE
     Indication: DECREASED APPETITE
     Route: 048
     Dates: start: 20160309
  5. CERAZETTE (DESOGESTREL) [Concomitant]
     Active Substance: DESOGESTREL
     Indication: ORAL CONTRACEPTION
     Route: 048
     Dates: start: 20150624
  6. OPRYMEA [Concomitant]
     Active Substance: PRAMIPEXOLE DIHYDROCHLORIDE
     Indication: RESTLESS LEGS SYNDROME
     Route: 048
     Dates: start: 20160330

REACTIONS (1)
  - Psoas abscess [Not Recovered/Not Resolved]

NARRATIVE: CASE EVENT DATE: 201802
